FAERS Safety Report 25068752 (Version 2)
Quarter: 2025Q1

REPORT INFORMATION
  Report Type: Spontaneous
  Country: US (occurrence: US)
  Receive Date: 20250312
  Receipt Date: 20250317
  Transmission Date: 20250408
  Serious: Yes (Other)
  Sender: SANOFI AVENTIS
  Company Number: US-SANOFI-02439930

PATIENT
  Sex: Female

DRUGS (1)
  1. TOUJEO [Suspect]
     Active Substance: INSULIN GLARGINE
     Dosage: 96 U, QD (BREAKS IT UP INTO 80 UNITS)

REACTIONS (3)
  - Cataract [Unknown]
  - Visual impairment [Unknown]
  - Product dispensing error [Unknown]
